FAERS Safety Report 5568391-6 (Version None)
Quarter: 2007Q4

REPORT INFORMATION
  Report Type: 
  Country: None (occurrence: None)
  Receive Date: 20071130
  Receipt Date: 20070823
  Transmission Date: 20080405
  Serious: No
  Sender: FDA-Public Use
  Company Number: US200708005539

PATIENT
  Age: 55 Year
  Sex: Male
  Weight: 181.4 kg

DRUGS (2)
  1. BYETTA [Suspect]
     Indication: WEIGHT DECREASED
     Dosage: 5 UG, 2/D, SUBCUTANEOUS
     Route: 058
     Dates: start: 20070821
  2. GLUCOVANCE [Concomitant]

REACTIONS (7)
  - ABDOMINAL PAIN UPPER [None]
  - BLOOD GLUCOSE ABNORMAL [None]
  - DECREASED APPETITE [None]
  - DIARRHOEA [None]
  - DYSGEUSIA [None]
  - GASTROINTESTINAL SOUNDS ABNORMAL [None]
  - NAUSEA [None]
